FAERS Safety Report 14151088 (Version 4)
Quarter: 2018Q1

REPORT INFORMATION
  Report Type: Spontaneous
  Country: IT (occurrence: IT)
  Receive Date: 20171102
  Receipt Date: 20180306
  Transmission Date: 20180508
  Serious: Yes (Life-Threatening)
  Sender: FDA-Public Use
  Company Number: IT-IBIGEN-2017.03101

PATIENT
  Age: 51 Year
  Sex: Male

DRUGS (1)
  1. AMPICILLINA E SULBACTAM IBI [Suspect]
     Active Substance: AMPICILLIN SODIUM\SULBACTAM SODIUM
     Indication: ANTIBIOTIC PROPHYLAXIS
     Dosage: 0.5 DF TOTAL
     Route: 042
     Dates: start: 20171012, end: 20171012

REACTIONS (2)
  - Loss of consciousness [Recovered/Resolved]
  - Anaphylactic shock [Recovered/Resolved]

NARRATIVE: CASE EVENT DATE: 20171012
